FAERS Safety Report 8765301 (Version 1)
Quarter: 2012Q4

REPORT INFORMATION
  Report Type: Report from Study
  Country: JP (occurrence: JP)
  Receive Date: 20120831
  Receipt Date: 20120831
  Transmission Date: 20130627
  Serious: Yes (Hospitalization)
  Sender: FDA-Public Use
  Company Number: JP-VERTEX PHARMACEUTICAL INC.-AE-2012-009539

PATIENT

DRUGS (9)
  1. VX-950 [Suspect]
     Indication: HEPATITIS C
     Dosage: 2250 mg, qd
     Route: 048
     Dates: start: 20120618, end: 20120621
  2. VX-950 [Suspect]
     Dosage: 1500 mg, qd
     Route: 048
     Dates: start: 20120625
  3. RIBAVIRIN [Concomitant]
     Indication: HEPATITIS C
     Dosage: 800 mg, qd
     Route: 048
     Dates: start: 20120618, end: 20120724
  4. RIBAVIRIN [Concomitant]
     Dosage: 200 mg, qd
     Route: 048
     Dates: start: 20120731
  5. PEGINTRON [Concomitant]
     Indication: HEPATITIS C
     Dosage: 1.5 ?g/kg, 1x/week
     Route: 058
     Dates: start: 20120618, end: 20120717
  6. PEGINTRON [Concomitant]
     Dosage: 1.5 ?g/kg, 1x/week
     Route: 058
     Dates: start: 20120724
  7. GLACTIV [Concomitant]
     Dosage: 100 mg, qd
  8. METGLUCO [Concomitant]
     Dosage: 500 mg, UNK
     Route: 048
  9. LENDORMIN [Concomitant]
     Dosage: 0.25 mg, qd prn
     Route: 048

REACTIONS (1)
  - Erythema multiforme [Recovered/Resolved]
